FAERS Safety Report 9014933 (Version 1)
Quarter: 2013Q1

REPORT INFORMATION
  Report Type: Spontaneous
  Country: US (occurrence: US)
  Receive Date: 20130116
  Receipt Date: 20130116
  Transmission Date: 20140127
  Serious: No
  Sender: FDA-Public Use
  Company Number: US-BIOGENIDEC-2013BI002140

PATIENT
  Age: 49 Year
  Sex: Female

DRUGS (6)
  1. TYSABRI [Suspect]
     Indication: MULTIPLE SCLEROSIS
     Route: 042
     Dates: start: 20120507, end: 20121102
  2. AVONEX [Concomitant]
     Indication: MULTIPLE SCLEROSIS
     Route: 030
     Dates: start: 20011003
  3. SYNTHROID [Concomitant]
     Indication: THYROID DISORDER
  4. DILANTIN [Concomitant]
     Indication: ANTICONVULSANT DRUG LEVEL BELOW THERAPEUTIC
  5. DILANTIN [Concomitant]
     Indication: COMPLEX PARTIAL SEIZURES
  6. KEPPRA [Concomitant]
     Indication: CONVULSION
     Route: 048
     Dates: start: 20120512

REACTIONS (5)
  - Ankle fracture [Recovered/Resolved]
  - Hypopnoea [Unknown]
  - Memory impairment [Not Recovered/Not Resolved]
  - Asthma [Unknown]
  - Liver function test abnormal [Not Recovered/Not Resolved]
